FAERS Safety Report 7622030-9 (Version None)
Quarter: 2011Q3

REPORT INFORMATION
  Report Type: 
  Country: None (occurrence: None)
  Receive Date: 20110720
  Receipt Date: 20101208
  Transmission Date: 20111222
  Serious: Yes (Other)
  Sender: FDA-Public Use
  Company Number: FR-BAYER-2010-003298

PATIENT
  Age: 58 Year
  Sex: Male

DRUGS (2)
  1. CIPROFLOXACIN [Suspect]
     Indication: OSTEITIS
     Dosage: 500 MG, UNK
     Route: 048
     Dates: start: 20101020, end: 20101029
  2. CLINDAMYCIN HCL [Suspect]
     Dosage: 150 MG, UNK
     Route: 048
     Dates: start: 20101020, end: 20101029

REACTIONS (2)
  - HEPATITIS [None]
  - TENDONITIS [None]
